FAERS Safety Report 8796770 (Version 2)
Quarter: 2012Q4

REPORT INFORMATION
  Report Type: 
  Country: US (occurrence: US)
  Receive Date: 20120919
  Receipt Date: 20121003
  Transmission Date: 20130627
  Serious: Yes (Hospitalization, Disabling, Other)
  Sender: FDA-Public Use
  Company Number: US-009507513-1109USA01921

PATIENT

DRUGS (11)
  1. FOSAMAX [Suspect]
     Indication: OSTEOPOROSIS
     Dosage: 70 mg, QW
     Route: 048
     Dates: start: 20020302
  2. FOSAMAX [Suspect]
     Indication: OSTEOPOROSIS PROPHYLAXIS
  3. ONE-A-DAY WOMEN^S [Concomitant]
     Dosage: UNK UNK, qd
     Dates: start: 1995
  4. AVANDIA [Concomitant]
     Dates: start: 1995
  5. ACTOS [Concomitant]
     Dates: start: 1995
  6. VERAPAMIL [Concomitant]
     Indication: HYPERTENSION
     Dates: start: 20010411, end: 20100419
  7. AMARYL [Concomitant]
     Indication: DIABETES MELLITUS
     Dates: start: 2001
  8. GLUCOPHAGE [Concomitant]
     Indication: DIABETES MELLITUS
     Dates: start: 2001
  9. GLIMEPIRIDE [Concomitant]
     Indication: DIABETES MELLITUS
     Dates: start: 2001
  10. FOSAMAX [Suspect]
     Indication: OSTEOPOROSIS
     Dosage: 70 mg, QW
     Route: 048
     Dates: start: 20081030, end: 20090807
  11. FOSAMAX [Suspect]
     Indication: OSTEOPOROSIS PROPHYLAXIS

REACTIONS (28)
  - Femur fracture [Unknown]
  - Carcinoid tumour [Unknown]
  - Haemoglobin decreased [Unknown]
  - Pyrexia [Recovered/Resolved]
  - Haematoma [Unknown]
  - Fall [Unknown]
  - Syncope [Unknown]
  - Syncope [Unknown]
  - Tricuspid valve incompetence [Unknown]
  - Tooth extraction [Unknown]
  - Blood cholesterol increased [Unknown]
  - Diabetic retinopathy [Unknown]
  - Cataract [Unknown]
  - Retinal disorder [Unknown]
  - Rectal polyp [Unknown]
  - Gastrointestinal tract adenoma [Unknown]
  - Glaucoma [Unknown]
  - Fall [Unknown]
  - Pelvic mass [Unknown]
  - Palpitations [Unknown]
  - Intervertebral disc protrusion [Unknown]
  - Extrasystoles [Unknown]
  - Palpitations [Unknown]
  - Dyspnoea exertional [Unknown]
  - Gastritis [Unknown]
  - Dyspepsia [Unknown]
  - Dizziness [Unknown]
  - Arthralgia [Unknown]
